FAERS Safety Report 12487732 (Version 1)
Quarter: 2016Q2

REPORT INFORMATION
  Report Type: Spontaneous
  Country: US (occurrence: US)
  Receive Date: 20160622
  Receipt Date: 20160622
  Transmission Date: 20160815
  Serious: No
  Sender: FDA-Public Use
  Company Number: US-BIOGEN-2016BI00250625

PATIENT
  Sex: Male

DRUGS (1)
  1. TECFIDERA [Suspect]
     Active Substance: DIMETHYL FUMARATE
     Indication: MULTIPLE SCLEROSIS
     Route: 048
     Dates: start: 201604

REACTIONS (10)
  - Muscle spasms [Unknown]
  - Cognitive disorder [Unknown]
  - Band sensation [Unknown]
  - Pain [Unknown]
  - Gait disturbance [Unknown]
  - Bladder disorder [Unknown]
  - Fatigue [Unknown]
  - Peroneal nerve palsy [Unknown]
  - Memory impairment [Unknown]
  - Speech disorder [Unknown]
